FAERS Safety Report 17011088 (Version 2)
Quarter: 2019Q4

REPORT INFORMATION
  Report Type: Report from Study
  Country: US (occurrence: US)
  Receive Date: 20191108
  Receipt Date: 20191127
  Transmission Date: 20200122
  Serious: Yes (Death)
  Sender: FDA-Public Use
  Company Number: US-PFIZER INC-2019484909

PATIENT
  Age: 31 Year
  Sex: Male

DRUGS (1)
  1. DILTIAZEM HCL [Suspect]
     Active Substance: DILTIAZEM HYDROCHLORIDE
     Dosage: UNK

REACTIONS (10)
  - Toxicity to various agents [Fatal]
  - Pneumonia aspiration [Fatal]
  - Bradycardia [Fatal]
  - Acute respiratory distress syndrome [Fatal]
  - Blister [Fatal]
  - Hypotension [Fatal]
  - Acute lung injury [Fatal]
  - Atrioventricular block [Fatal]
  - Coagulopathy [Fatal]
  - Hepatotoxicity [Fatal]

NARRATIVE: CASE EVENT DATE: 2018
